FAERS Safety Report 23542379 (Version 1)
Quarter: 2024Q1

REPORT INFORMATION
  Report Type: Report from Study
  Country: US (occurrence: US)
  Receive Date: 20240220
  Receipt Date: 20240220
  Transmission Date: 20240410
  Serious: Yes (Other)
  Sender: FDA-Public Use
  Company Number: US-ABBVIE-5643022

PATIENT
  Sex: Female

DRUGS (4)
  1. IMBRUVICA [Suspect]
     Active Substance: IBRUTINIB
     Indication: Chronic lymphocytic leukaemia
     Dosage: FORM STRENGTH: 140MG
     Route: 048
     Dates: start: 20180412, end: 20180504
  2. IMBRUVICA [Suspect]
     Active Substance: IBRUTINIB
     Indication: Chronic lymphocytic leukaemia
     Dosage: FORM STRENGTH: 140MG
     Route: 048
     Dates: start: 20180505, end: 20180520
  3. IMBRUVICA [Suspect]
     Active Substance: IBRUTINIB
     Indication: Chronic lymphocytic leukaemia
     Dosage: FORM STRENGTH: 140MG
     Route: 048
     Dates: start: 20180521, end: 20210706
  4. IMBRUVICA [Suspect]
     Active Substance: IBRUTINIB
     Indication: Chronic lymphocytic leukaemia
     Dosage: FORM STRENGTH: 140MG
     Route: 048
     Dates: start: 20180707

REACTIONS (5)
  - Deafness unilateral [Unknown]
  - Tinnitus [Unknown]
  - Brain neoplasm [Unknown]
  - Pain [Unknown]
  - Depressed mood [Unknown]
